FAERS Safety Report 13850247 (Version 1)
Quarter: 2017Q3

REPORT INFORMATION
  Report Type: Report from Study
  Country: None (occurrence: CO)
  Receive Date: 20170809
  Receipt Date: 20170809
  Transmission Date: 20171127
  Serious: Yes (Death, Hospitalization)
  Sender: FDA-Public Use
  Company Number: CO-ABBVIE-17P-036-2065519-00

PATIENT
  Age: 51 Year
  Sex: Female

DRUGS (1)
  1. ZEMPLAR [Suspect]
     Active Substance: PARICALCITOL
     Indication: HYPERPARATHYROIDISM SECONDARY
     Route: 042
     Dates: start: 20130918, end: 20170403

REACTIONS (3)
  - Respiratory arrest [Fatal]
  - Pelvic fracture [Fatal]
  - Fall [Fatal]

NARRATIVE: CASE EVENT DATE: 20170720
